FAERS Safety Report 23213403 (Version 3)
Quarter: 2023Q4

REPORT INFORMATION
  Report Type: Spontaneous
  Country: PL (occurrence: PL)
  Receive Date: 20231121
  Receipt Date: 20231130
  Transmission Date: 20240110
  Serious: Yes (Death, Life-Threatening, Hospitalization, Other)
  Sender: FDA-Public Use
  Company Number: PL-MLMSERVICE-20231108-4647069-1

PATIENT
  Age: 62 Year
  Sex: Male

DRUGS (22)
  1. DOXORUBICIN HYDROCHLORIDE [Suspect]
     Active Substance: DOXORUBICIN HYDROCHLORIDE
     Indication: Disease progression
     Dosage: UNK
     Dates: start: 2016
  2. DOXORUBICIN HYDROCHLORIDE [Suspect]
     Active Substance: DOXORUBICIN HYDROCHLORIDE
     Indication: Chronic lymphocytic leukaemia
  3. RITUXIMAB [Suspect]
     Active Substance: RITUXIMAB
     Indication: Disease progression
     Dosage: UNK
     Dates: start: 2017
  4. RITUXIMAB [Suspect]
     Active Substance: RITUXIMAB
     Indication: Chronic lymphocytic leukaemia
     Dosage: 2 DF
  5. RITUXIMAB [Suspect]
     Active Substance: RITUXIMAB
     Indication: Viraemia
     Dosage: UNK
  6. CHLORAMBUCIL [Suspect]
     Active Substance: CHLORAMBUCIL
     Indication: Disease progression
     Dosage: UNK
     Dates: end: 2010
  7. CHLORAMBUCIL [Suspect]
     Active Substance: CHLORAMBUCIL
     Indication: Chronic lymphocytic leukaemia
  8. VINCRISTINE [Suspect]
     Active Substance: VINCRISTINE
     Indication: Disease progression
     Dosage: UNK
     Dates: start: 2016
  9. VINCRISTINE [Suspect]
     Active Substance: VINCRISTINE
     Indication: Chronic lymphocytic leukaemia
  10. BENDAMUSTINE [Suspect]
     Active Substance: BENDAMUSTINE
     Indication: Chronic lymphocytic leukaemia
     Dosage: UNK
  11. BENDAMUSTINE [Suspect]
     Active Substance: BENDAMUSTINE
     Indication: Disease progression
  12. PREDNISONE [Suspect]
     Active Substance: PREDNISONE
     Indication: Chronic lymphocytic leukaemia
     Dosage: UNK
     Dates: start: 2016
  13. PREDNISONE [Suspect]
     Active Substance: PREDNISONE
     Indication: Disease progression
  14. IBRUTINIB [Suspect]
     Active Substance: IBRUTINIB
     Indication: Disease progression
     Dosage: UNK
     Dates: start: 2017
  15. IBRUTINIB [Suspect]
     Active Substance: IBRUTINIB
     Indication: Chronic lymphocytic leukaemia
  16. CYCLOPHOSPHAMIDE [Suspect]
     Active Substance: CYCLOPHOSPHAMIDE
     Indication: Disease progression
     Dosage: UNK
     Dates: start: 2010
  17. CYCLOPHOSPHAMIDE [Suspect]
     Active Substance: CYCLOPHOSPHAMIDE
     Indication: Chronic lymphocytic leukaemia
     Dosage: UNK
     Dates: start: 2016
  18. FLUDARABINE [Suspect]
     Active Substance: FLUDARABINE PHOSPHATE
     Indication: Chronic lymphocytic leukaemia
     Dosage: UNK
     Dates: start: 2010
  19. FLUDARABINE [Suspect]
     Active Substance: FLUDARABINE PHOSPHATE
     Indication: Disease progression
  20. DEXAMETHASONE [Suspect]
     Active Substance: DEXAMETHASONE
     Indication: Disease progression
     Dosage: UNK
  21. DEXAMETHASONE [Suspect]
     Active Substance: DEXAMETHASONE
     Indication: Chronic lymphocytic leukaemia
  22. LAMIVUDINE [Concomitant]
     Active Substance: LAMIVUDINE
     Dosage: UNK

REACTIONS (7)
  - Second primary malignancy [Fatal]
  - Natural killer-cell lymphoblastic lymphoma [Fatal]
  - Bone marrow disorder [Fatal]
  - Epstein-Barr virus infection [Unknown]
  - Cytomegalovirus infection [Unknown]
  - Disease recurrence [Unknown]
  - Candida infection [Unknown]
